FAERS Safety Report 25654397 (Version 4)
Quarter: 2025Q4

REPORT INFORMATION
  Report Type: Report from Study
  Country: AR (occurrence: AR)
  Receive Date: 20250807
  Receipt Date: 20251006
  Transmission Date: 20260118
  Serious: Yes (Death, Hospitalization, Other)
  Sender: TAKEDA
  Company Number: AR-TAKEDA-2025TUS069693

PATIENT
  Age: 6 Year
  Sex: Female

DRUGS (10)
  1. HUMAN IMMUNOGLOBULIN G\HYALURONIDASE RECOMBINANT HUMAN [Suspect]
     Active Substance: HUMAN IMMUNOGLOBULIN G\HYALURONIDASE (HUMAN RECOMBINANT)
     Indication: Immunodeficiency
     Dosage: UNK UNK, Q4WEEKS
     Dates: start: 20250708
  2. HUMAN IMMUNOGLOBULIN G\HYALURONIDASE RECOMBINANT HUMAN [Suspect]
     Active Substance: HUMAN IMMUNOGLOBULIN G\HYALURONIDASE (HUMAN RECOMBINANT)
     Indication: Combined immunodeficiency
     Dosage: 10 GRAM, Q4WEEKS
  3. HUMAN IMMUNOGLOBULIN G\HYALURONIDASE RECOMBINANT HUMAN [Suspect]
     Active Substance: HUMAN IMMUNOGLOBULIN G\HYALURONIDASE (HUMAN RECOMBINANT)
     Dosage: UNK
  4. MEROPENEM [Concomitant]
     Active Substance: MEROPENEM
     Dosage: 220 MILLIGRAM
  5. VANCOMYCIN [Concomitant]
     Active Substance: VANCOMYCIN
     Dosage: 150 MILLIGRAM
  6. OMEPRAZOLE [Concomitant]
     Active Substance: OMEPRAZOLE
     Dosage: 10 MILLIGRAM
  7. LEVETIRACETAM [Concomitant]
     Active Substance: LEVETIRACETAM
     Dosage: 500 MILLIGRAM
  8. BACLOFEN [Concomitant]
     Active Substance: BACLOFEN
     Dosage: 5 MILLIGRAM
  9. ARIPIPRAZOLE [Concomitant]
     Active Substance: ARIPIPRAZOLE
     Dosage: UNK
  10. ZINC [Concomitant]
     Active Substance: ZINC
     Dosage: UNK

REACTIONS (5)
  - Pneumonia [Fatal]
  - Immunodeficiency [Fatal]
  - Urinary tract infection [Unknown]
  - Pleural effusion [Recovering/Resolving]
  - Pyrexia [Recovered/Resolved]

NARRATIVE: CASE EVENT DATE: 20250724
